FAERS Safety Report 4609335-0 (Version None)
Quarter: 2005Q1

REPORT INFORMATION
  Report Type: 
  Country: None (occurrence: None)
  Receive Date: 20050314
  Receipt Date: 20050224
  Transmission Date: 20050727
  Serious: Yes (Other)
  Sender: FDA-Public Use
  Company Number: 2005VX000189

PATIENT
  Age: 78 Year
  Sex: Male
  Weight: 76 kg

DRUGS (8)
  1. EFUDIX  (FLUOROURACIL) [Suspect]
     Indication: ACTINIC KERATOSIS
     Dosage: TWICE A DAY; TOPICAL
     Route: 061
     Dates: start: 20050117, end: 20050131
  2. MONTELUKAST SODIUM [Concomitant]
  3. ASPIRIN [Concomitant]
  4. SIMVASTATIN [Concomitant]
  5. AMITRIPTYLINE [Concomitant]
  6. AMLODIPINE [Concomitant]
  7. DUTASTERIDE [Concomitant]
  8. CHLORAMPHENICOL [Concomitant]

REACTIONS (1)
  - HENOCH-SCHONLEIN PURPURA [None]
